FAERS Safety Report 17845539 (Version 2)
Quarter: 2020Q2

REPORT INFORMATION
  Report Type: Spontaneous
  Country: US (occurrence: US)
  Receive Date: 20200601
  Receipt Date: 20200629
  Transmission Date: 20200714
  Serious: No
  Sender: FDA-Public Use
  Company Number: US-PFIZER INC-2020211601

PATIENT
  Age: 47 Year
  Sex: Female
  Weight: 52.16 kg

DRUGS (7)
  1. DEPO-ESTRADIOL [Suspect]
     Active Substance: ESTRADIOL CYPIONATE
     Indication: HORMONE THERAPY
     Dosage: UNK (0.3CC INTRAMUSCULAR INJECTION EVERY 15 DAYS)
     Route: 030
  2. DEPO-ESTRADIOL [Suspect]
     Active Substance: ESTRADIOL CYPIONATE
     Dosage: UNK (INCREASED TO 0.2CC INTRAMUSCULAR INJECTION EVERY 7 DAYS)
     Route: 030
  3. DEPO-ESTRADIOL [Suspect]
     Active Substance: ESTRADIOL CYPIONATE
     Dosage: UNK (INCREASED TO EVERY 10 DAYS)
     Route: 030
  4. TIROSINT [Concomitant]
     Active Substance: LEVOTHYROXINE SODIUM
     Indication: THYROID DISORDER
     Dosage: 112 UG, DAILY
  5. DEPO-ESTRADIOL [Suspect]
     Active Substance: ESTRADIOL CYPIONATE
     Dosage: UNK (INCREASED TO EVERY 7 DAYS)
     Route: 030
  6. DEPO-ESTRADIOL [Suspect]
     Active Substance: ESTRADIOL CYPIONATE
     Dosage: UNK (DECREASED TO 0.2CC INTRAMUSCULAR INJECTION EVERY 10 DAYS)
     Route: 030
     Dates: start: 202003
  7. TESTOSTERONE. [Concomitant]
     Active Substance: TESTOSTERONE
     Indication: HORMONE THERAPY
     Dosage: UNK (CREAM NOT DAILY)

REACTIONS (5)
  - Product physical consistency issue [Unknown]
  - Blood oestrogen decreased [Unknown]
  - Anxiety [Unknown]
  - Therapeutic product effect incomplete [Unknown]
  - Blood follicle stimulating hormone increased [Unknown]
